FAERS Safety Report 4341144-2 (Version None)
Quarter: 2004Q2

REPORT INFORMATION
  Report Type: 
  Country: None (occurrence: None)
  Receive Date: 20040419
  Receipt Date: 19990609
  Transmission Date: 20050107
  Serious: Yes (Hospitalization)
  Sender: FDA-Public Use
  Company Number: FR-GLAXOSMITHKLINE-B0067664A

PATIENT
  Sex: Male
  Weight: 6.9 kg

DRUGS (9)
  1. LAMIVUDINE [Suspect]
     Indication: ANTIVIRAL PROPHYLAXIS
     Route: 048
  2. RETROVIR [Suspect]
     Indication: ANTIVIRAL PROPHYLAXIS
     Route: 048
  3. RETROVIR [Suspect]
     Indication: HIV INFECTION
  4. EPIVIR [Suspect]
     Indication: HIV INFECTION
  5. ERGOCALCIFEROL [Concomitant]
  6. FERROSTRANE [Concomitant]
  7. SODIUM FLUORIDE [Concomitant]
  8. TICE BCG [Concomitant]
     Dates: start: 19980806
  9. HEPATITIS VACCINE [Concomitant]
     Dates: start: 19980604

REACTIONS (13)
  - ALANINE AMINOTRANSFERASE INCREASED [None]
  - ANAEMIA [None]
  - ASPARTATE AMINOTRANSFERASE INCREASED [None]
  - BLOOD CREATININE INCREASED [None]
  - BLOOD LACTIC ACID INCREASED [None]
  - COLITIS [None]
  - CYTOMEGALOVIRUS INFECTION [None]
  - ECZEMA [None]
  - MASTITIS [None]
  - METABOLIC DISORDER [None]
  - NEUTROPENIA [None]
  - RESTLESSNESS [None]
  - SEBORRHOEIC DERMATITIS [None]
